FAERS Safety Report 7269986-4 (Version None)
Quarter: 2011Q1

REPORT INFORMATION
  Report Type: 
  Country: None (occurrence: None)
  Receive Date: 20110202
  Receipt Date: 20110126
  Transmission Date: 20110831
  Serious: Yes (Other)
  Sender: FDA-Public Use
  Company Number: CA-US-EMD SERONO, INC.-7025315

PATIENT
  Sex: Female

DRUGS (22)
  1. REBIF [Suspect]
     Indication: RELAPSING-REMITTING MULTIPLE SCLEROSIS
     Dates: start: 20101021
  2. SYMBICORT [Concomitant]
     Dosage: 2 PUFFS
  3. HYDROCHLOROTHIAZIDE [Concomitant]
  4. TEMAZETAM [Concomitant]
  5. VIT C WITH ROSE HIPS (VITAMIN C WITH ROSE HIPS) [Concomitant]
  6. LORAZEPAM [Concomitant]
  7. ASPIRIN [Concomitant]
     Dosage: LOW DOSE
  8. SPIRONOLACTONE [Concomitant]
  9. VIT D (VITAMIN D) [Concomitant]
  10. MULTI-VITAMINS [Concomitant]
  11. ELECOMBE [Concomitant]
     Indication: EAR DISORDER
  12. UROMOL HC [Concomitant]
     Indication: DRY SKIN
  13. TRIAZADONE (TRAZODONE) [Concomitant]
  14. GLUCOSAMINE SULFATE [Concomitant]
  15. ATROVENT [Concomitant]
     Dosage: 2-3 PUFFS
  16. NEXIUM [Concomitant]
  17. NASONEX [Concomitant]
     Route: 045
  18. IBUPROFEN [Concomitant]
     Indication: PREMEDICATION
  19. OMEGA 3 WILD SALMON (OMEGA 3) [Concomitant]
  20. REBIF [Suspect]
  21. TIVEA-A [Concomitant]
     Indication: PRECANCEROUS SKIN LESION
  22. VIT B COMPLEX [Concomitant]

REACTIONS (13)
  - MUSCLE SPASMS [None]
  - GLUCOSE TOLERANCE IMPAIRED [None]
  - INFLUENZA LIKE ILLNESS [None]
  - DEPRESSION [None]
  - INJECTION SITE ERYTHEMA [None]
  - MUSCULAR WEAKNESS [None]
  - NAUSEA [None]
  - ANXIETY [None]
  - GASTRIC DISORDER [None]
  - NECK PAIN [None]
  - BACK PAIN [None]
  - FATIGUE [None]
  - HEPATIC ENZYME INCREASED [None]
